FAERS Safety Report 14963090 (Version 2)
Quarter: 2018Q2

REPORT INFORMATION
  Report Type: Report from Study
  Country: US (occurrence: US)
  Receive Date: 20180601
  Receipt Date: 20180607
  Transmission Date: 20180711
  Serious: Yes (Other)
  Sender: FDA-Public Use
  Company Number: US-PFIZER INC-2018220272

PATIENT
  Age: 12 Year
  Sex: Male
  Weight: 48 kg

DRUGS (3)
  1. KETAMINE HCL [Suspect]
     Active Substance: KETAMINE HYDROCHLORIDE
     Indication: SICKLE CELL DISEASE
     Dosage: STARTING DOSE (0.1+0.1 MG/KG BOLUS) MG/KG/H
     Route: 040
  2. KETAMINE HCL [Suspect]
     Active Substance: KETAMINE HYDROCHLORIDE
     Indication: PAIN
     Dosage: HIGHEST DOSE 0.2 (MG/KG/H)
  3. KETAMINE HCL [Suspect]
     Active Substance: KETAMINE HYDROCHLORIDE
     Indication: PAIN IN EXTREMITY

REACTIONS (4)
  - Unresponsive to stimuli [Unknown]
  - Nystagmus [Unknown]
  - Agitation [Unknown]
  - Blood pressure increased [Unknown]
